FAERS Safety Report 11454391 (Version 1)
Quarter: 2015Q3

REPORT INFORMATION
  Report Type: Spontaneous
  Country: US (occurrence: US)
  Receive Date: 20150831
  Receipt Date: 20150831
  Transmission Date: 20151125
  Serious: No
  Sender: FDA-Public Use
  Company Number: US-ELI_LILLY_AND_COMPANY-US201003007412

PATIENT
  Sex: Female

DRUGS (1)
  1. CYMBALTA [Suspect]
     Active Substance: DULOXETINE HYDROCHLORIDE
     Indication: GAIT DISTURBANCE
     Dosage: 30 MG, UNK
     Route: 048
     Dates: start: 20100222

REACTIONS (4)
  - Off label use [Not Recovered/Not Resolved]
  - Chromaturia [Unknown]
  - Epistaxis [Recovered/Resolved]
  - Bacterial infection [Unknown]

NARRATIVE: CASE EVENT DATE: 2010
